FAERS Safety Report 6457225-3 (Version None)
Quarter: 2009Q4

REPORT INFORMATION
  Report Type: 
  Country: None (occurrence: None)
  Receive Date: 20091125
  Receipt Date: 20091113
  Transmission Date: 20100525
  Serious: No
  Sender: FDA-Public Use
  Company Number: ES-ELI_LILLY_AND_COMPANY-ES200910007797

PATIENT
  Age: 60 Year
  Sex: Female

DRUGS (10)
  1. BYETTA [Suspect]
     Indication: TYPE 2 DIABETES MELLITUS
     Dosage: 5 UG, UNKNOWN
     Route: 058
     Dates: start: 20091016, end: 20091029
  2. METFORMIN HCL [Concomitant]
  3. DAONIL [Concomitant]
     Indication: TYPE 2 DIABETES MELLITUS
     Dosage: UNK, UNKNOWN
     Dates: start: 20070101
  4. METFORMIN HCL [Concomitant]
     Indication: TYPE 2 DIABETES MELLITUS
     Dosage: UNK, UNKNOWN
     Dates: start: 20070101
  5. CO-RENITEC [Concomitant]
     Dosage: 20/12.5 D/F, UNKNOWN
     Dates: start: 20070101
  6. IBUPROFEN [Concomitant]
     Dosage: 600 MG, 2/D
     Dates: start: 20070101
  7. ORFIDAL [Concomitant]
     Dosage: 1 MG, UNKNOWN
     Dates: start: 20070101
  8. PAXETIL [Concomitant]
     Dosage: UNK, UNKNOWN
     Dates: start: 20070101
  9. PRAREDUCT [Concomitant]
     Dosage: 40 MG, UNKNOWN
     Dates: start: 20070101
  10. VOLTAREN                                /SCH/ [Concomitant]
     Dosage: UNK, UNKNOWN
     Dates: start: 20070101

REACTIONS (4)
  - ABDOMINAL PAIN UPPER [None]
  - CONSTIPATION [None]
  - DIZZINESS [None]
  - VOMITING [None]
